FAERS Safety Report 13035342 (Version 1)
Quarter: 2016Q4

REPORT INFORMATION
  Report Type: Spontaneous
  Country: US (occurrence: US)
  Receive Date: 20161216
  Receipt Date: 20161216
  Transmission Date: 20170207
  Serious: Yes (Death, Hospitalization)
  Sender: FDA-Public Use
  Company Number: None

PATIENT
  Age: 87 Year
  Sex: Female

DRUGS (1)
  1. REVLIMID [Suspect]
     Active Substance: LENALIDOMIDE
     Indication: PLASMA CELL MYELOMA
     Route: 048
     Dates: start: 20131212

REACTIONS (5)
  - Fluid retention [None]
  - Neuropathy peripheral [None]
  - Fatigue [None]
  - Asthenia [None]
  - Balance disorder [None]

NARRATIVE: CASE EVENT DATE: 20140504
